FAERS Safety Report 12341507 (Version 30)
Quarter: 2019Q2

REPORT INFORMATION
  Report Type: Report from Study
  Country: CA (occurrence: CA)
  Receive Date: 20160506
  Receipt Date: 20190403
  Transmission Date: 20190711
  Serious: Yes (Hospitalization, Other)
  Sender: FDA-Public Use
  Company Number: PHHY2016CA003462

PATIENT
  Age: 79 Year
  Sex: Male

DRUGS (13)
  1. SANDOSTATIN LAR DEPOT [Suspect]
     Active Substance: OCTREOTIDE ACETATE
     Indication: CARCINOID SYNDROME
     Dosage: 40 MG, QMO (EVERY 4 WEEKS)
     Route: 030
     Dates: start: 20160506
  2. AMLODIPINE [Suspect]
     Active Substance: AMLODIPINE BESYLATE
     Indication: PRODUCT USED FOR UNKNOWN INDICATION
     Dosage: 5 MG, QD
     Route: 065
     Dates: start: 20161210
  3. COVERSYL [Concomitant]
     Active Substance: PERINDOPRIL
     Indication: BLOOD PRESSURE INCREASED
     Dosage: 5 MG, QD
     Route: 065
     Dates: start: 20161210
  4. COVERSYL [Concomitant]
     Active Substance: PERINDOPRIL
     Dosage: 2 MG, QD
     Route: 065
  5. ERTAPENEM. [Concomitant]
     Active Substance: ERTAPENEM SODIUM
     Indication: PRODUCT USED FOR UNKNOWN INDICATION
     Dosage: 30 MG, QD (1,000MG VIA PICC LINE INFUSED 30 MG ONCE DAILY)
     Route: 065
     Dates: start: 20161208
  6. BABY ASPIRIN [Concomitant]
     Active Substance: ASPIRIN
     Indication: PRODUCT USED FOR UNKNOWN INDICATION
     Route: 065
  7. EYE DROPS [Concomitant]
     Active Substance: UNSPECIFIED INGREDIENT
     Indication: PRODUCT USED FOR UNKNOWN INDICATION
     Route: 065
  8. BACLOFEN. [Suspect]
     Active Substance: BACLOFEN
     Indication: PRODUCT USED FOR UNKNOWN INDICATION
     Route: 065
  9. SANDOSTATIN [Suspect]
     Active Substance: OCTREOTIDE ACETATE
     Indication: CARCINOID TUMOUR OF THE SMALL BOWEL
     Dosage: 100 UG, TID
     Route: 058
     Dates: start: 201512
  10. SANDOSTATIN LAR DEPOT [Suspect]
     Active Substance: OCTREOTIDE ACETATE
     Indication: CARCINOID TUMOUR OF THE SMALL BOWEL
     Dosage: 30 MG, QMO (EVERY 4 WEEKS)
     Route: 030
     Dates: start: 20160128, end: 20160421
  11. SANDOSTATIN LAR DEPOT [Suspect]
     Active Substance: OCTREOTIDE ACETATE
     Indication: ABDOMINAL DISCOMFORT
  12. SANDOSTATIN LAR DEPOT [Suspect]
     Active Substance: OCTREOTIDE ACETATE
     Indication: METASTASES TO LIVER
     Dosage: 40 MG, QMO (EVERY 4 WEEKS)
     Route: 030
  13. SANDOSTATIN LAR DEPOT [Suspect]
     Active Substance: OCTREOTIDE ACETATE
     Indication: METASTASIS
     Dosage: 2 X 20MG TWICE
     Route: 065
     Dates: start: 20181109

REACTIONS (33)
  - Bronchitis [Unknown]
  - Heart rate decreased [Unknown]
  - Weight decreased [Unknown]
  - Diarrhoea [Unknown]
  - Injection site pain [Recovered/Resolved]
  - Acne [Unknown]
  - Injection site pain [Not Recovered/Not Resolved]
  - Intestinal obstruction [Unknown]
  - Abdominal adhesions [Unknown]
  - Erythema [Unknown]
  - Incision site complication [Unknown]
  - Flushing [Unknown]
  - Pruritus [Unknown]
  - Scar [Unknown]
  - Liver abscess [Unknown]
  - Metastases to liver [Unknown]
  - Blood pressure increased [Unknown]
  - Faeces soft [Unknown]
  - Blood pressure systolic increased [Unknown]
  - Faeces discoloured [Unknown]
  - Rash [Unknown]
  - Cholelithiasis [Unknown]
  - Nasal polyps [Unknown]
  - Hepatic lesion [Unknown]
  - Influenza [Unknown]
  - Sinusitis [Unknown]
  - Abdominal distension [Unknown]
  - Flatulence [Unknown]
  - Intercepted product administration error [Unknown]
  - Body temperature decreased [Unknown]
  - Sciatica [Unknown]
  - Constipation [Recovering/Resolving]
  - Injection site haemorrhage [Unknown]

NARRATIVE: CASE EVENT DATE: 20160206
